FAERS Safety Report 7396877-0 (Version None)
Quarter: 2011Q2

REPORT INFORMATION
  Report Type: 
  Country: None (occurrence: None)
  Receive Date: 20110406
  Receipt Date: 20101230
  Transmission Date: 20111010
  Serious: No
  Sender: FDA-Public Use
  Company Number: US-BAYER-2011-026363

PATIENT
  Sex: Female
  Weight: 54 kg

DRUGS (3)
  1. IBUPROFEN [Suspect]
     Indication: ARTHRALGIA
     Dosage: UNK
     Dates: start: 20101228
  2. ASPIRIN [Suspect]
     Indication: PRODUCT USED FOR UNKNOWN INDICATION
     Dosage: 1 DF, BID
     Route: 048
     Dates: start: 20101229, end: 20101229
  3. LEVOXYL [Concomitant]

REACTIONS (3)
  - FATIGUE [None]
  - DIZZINESS [None]
  - PALPITATIONS [None]
